FAERS Safety Report 5901124-X (Version None)
Quarter: 2008Q3

REPORT INFORMATION
  Report Type: 
  Country: None (occurrence: None)
  Receive Date: 20080929
  Receipt Date: 20071030
  Transmission Date: 20090109
  Serious: Yes (Other)
  Sender: FDA-Public Use
  Company Number: US-BAYER-200712972BWH

PATIENT
  Age: 64 Year
  Sex: Female
  Weight: 75 kg

DRUGS (17)
  1. AVELOX [Suspect]
     Indication: INTESTINAL OBSTRUCTION
     Route: 042
     Dates: start: 20070704
  2. AMBIEN [Concomitant]
  3. ASACOL [Concomitant]
  4. CYMBALTA [Concomitant]
  5. EVISTA [Concomitant]
  6. KLONOPIN [Concomitant]
  7. LORTAB [Concomitant]
  8. PROTONIX [Concomitant]
  9. ZOCOR [Concomitant]
  10. FLAGYL [Concomitant]
  11. MORPHINE SULFATE INJ [Concomitant]
     Route: 042
     Dates: start: 20070704
  12. PHENERGAN HCL [Concomitant]
     Route: 042
     Dates: start: 20070704
  13. PHENERGAN HCL [Concomitant]
     Route: 042
     Dates: start: 20070704
  14. SODIUM CHLORIDE [Concomitant]
     Route: 041
     Dates: start: 20070704
  15. POTASSIUM CHLORIDE [Concomitant]
     Route: 042
     Dates: start: 20070704
  16. STEROIDS [Concomitant]
     Indication: COLITIS
  17. DEMEROL [Concomitant]
     Route: 042
     Dates: start: 20070704

REACTIONS (5)
  - CARDIAC ARREST [None]
  - CARDIO-RESPIRATORY ARREST [None]
  - PULSE ABSENT [None]
  - RESPIRATORY ARREST [None]
  - UNRESPONSIVE TO STIMULI [None]
